FAERS Safety Report 9881551 (Version 1)
Quarter: 2014Q1

REPORT INFORMATION
  Report Type: Spontaneous
  Country: US (occurrence: US)
  Receive Date: 20140207
  Receipt Date: 20140207
  Transmission Date: 20141002
  Serious: No
  Sender: FDA-Public Use
  Company Number: US-MYLANLABS-2014S1001403

PATIENT
  Sex: Male

DRUGS (1)
  1. MORPHINE SULFATE EXTENDED-RELEASE TABLETS [Suspect]
     Indication: PAIN
     Route: 048
     Dates: start: 201312

REACTIONS (1)
  - Abdominal pain upper [Not Recovered/Not Resolved]
